FAERS Safety Report 17025710 (Version 3)
Quarter: 2021Q2

REPORT INFORMATION
  Report Type: Spontaneous
  Country: US (occurrence: US)
  Receive Date: 20191113
  Receipt Date: 20210416
  Transmission Date: 20210716
  Serious: Yes (Other)
  Sender: FDA-Public Use
  Company Number: US-ASTRAZENECA-2019SF57882

PATIENT
  Age: 14888 Day
  Sex: Female

DRUGS (55)
  1. NEXIUM [Suspect]
     Active Substance: ESOMEPRAZOLE MAGNESIUM
     Indication: GASTROOESOPHAGEAL REFLUX DISEASE
     Route: 048
     Dates: start: 2000
  2. RANITIDINE. [Concomitant]
     Active Substance: RANITIDINE
  3. PROMETHAZINE [Concomitant]
     Active Substance: PROMETHAZINE HYDROCHLORIDE
  4. MUPIROCIN. [Concomitant]
     Active Substance: MUPIROCIN
  5. SULFAMETHOXAZOLE [Concomitant]
     Active Substance: SULFAMETHOXAZOLE
  6. VALACYCLOVIR [Concomitant]
     Active Substance: VALACYCLOVIR HYDROCHLORIDE
  7. IBUPROFEN. [Concomitant]
     Active Substance: IBUPROFEN
     Indication: PAIN
     Dates: start: 2010, end: 2011
  8. ROLAIDS [Concomitant]
     Active Substance: CALCIUM CARBONATE\MAGNESIUM HYDROXIDE
     Dates: start: 1990
  9. ZOLPIDEM [Concomitant]
     Active Substance: ZOLPIDEM TARTRATE
  10. PAROXETINE. [Concomitant]
     Active Substance: PAROXETINE
  11. NAPROXEN. [Concomitant]
     Active Substance: NAPROXEN
  12. FLUCONAZOLE. [Concomitant]
     Active Substance: FLUCONAZOLE
  13. NEXIUM [Suspect]
     Active Substance: ESOMEPRAZOLE MAGNESIUM
     Indication: GASTROOESOPHAGEAL REFLUX DISEASE
     Dosage: VARIOUS DATES AND YEARS INCLUDING BUT NOT LIMITED TO BEGINNING IN AT LEAST APPROXIMATELY 2017
     Route: 048
  14. MELOXICAM. [Concomitant]
     Active Substance: MELOXICAM
     Indication: PAIN
     Dates: start: 2008, end: 2017
  15. TRIAMTERENE AND HYDROCHLOROTHIAZIDE [Concomitant]
     Active Substance: HYDROCHLOROTHIAZIDE\TRIAMTERENE
     Indication: HYPERTENSION
     Dates: start: 2007, end: 2009
  16. FUROSEMIDE. [Concomitant]
     Active Substance: FUROSEMIDE
     Indication: OEDEMA
     Dates: start: 201604, end: 201608
  17. PEPCID [Concomitant]
     Active Substance: FAMOTIDINE
     Dosage: PEPCID (OTC)
     Dates: start: 2009, end: 2010
  18. ZANTAC [Concomitant]
     Active Substance: RANITIDINE HYDROCHLORIDE
     Dosage: ZANTAC 150
  19. RELION [Concomitant]
  20. OXCARBAZEPINE. [Concomitant]
     Active Substance: OXCARBAZEPINE
  21. BROMPHENIR [Concomitant]
  22. LUNESTA [Concomitant]
     Active Substance: ESZOPICLONE
  23. KETOPROFEN. [Concomitant]
     Active Substance: KETOPROFEN
  24. CEFALEXIN [Concomitant]
     Active Substance: CEPHALEXIN
  25. CYCLOBENZAPRINE. [Concomitant]
     Active Substance: CYCLOBENZAPRINE
  26. METHOCARBAMOL. [Concomitant]
     Active Substance: METHOCARBAMOL
  27. BENZODIAZEPINE [Concomitant]
     Active Substance: BENZODIAZEPINE
  28. ZEGERID [Suspect]
     Active Substance: OMEPRAZOLE\SODIUM BICARBONATE
     Indication: GASTROOESOPHAGEAL REFLUX DISEASE
     Route: 065
  29. LISINOPRIL. [Concomitant]
     Active Substance: LISINOPRIL
     Indication: CARDIAC DISORDER
     Dates: start: 2014, end: 2018
  30. AZITHROMYCIN ANHYDROUS. [Concomitant]
     Active Substance: AZITHROMYCIN ANHYDROUS
     Indication: INFECTION
     Dates: start: 201005
  31. TIZANIDINE. [Concomitant]
     Active Substance: TIZANIDINE
     Indication: PAIN
     Dates: start: 200412
  32. DICLOFENAC [Concomitant]
     Active Substance: DICLOFENAC
  33. BUSPIRONE [Concomitant]
     Active Substance: BUSPIRONE HYDROCHLORIDE
  34. OXYCODONE [Concomitant]
     Active Substance: OXYCODONE
  35. OSELTAMIVIR [Concomitant]
     Active Substance: OSELTAMIVIR
  36. NEXIUM [Suspect]
     Active Substance: ESOMEPRAZOLE MAGNESIUM
     Indication: GASTROOESOPHAGEAL REFLUX DISEASE
     Dosage: GENERIC
     Route: 065
     Dates: start: 201805, end: 201904
  37. PROTONIX [Suspect]
     Active Substance: PANTOPRAZOLE SODIUM
     Indication: GASTROOESOPHAGEAL REFLUX DISEASE
     Route: 065
     Dates: start: 20180710, end: 20181204
  38. ZANTAC [Concomitant]
     Active Substance: RANITIDINE HYDROCHLORIDE
     Dosage: ZANTAC OTC
     Dates: start: 2009, end: 2010
  39. TRAZODONE [Concomitant]
     Active Substance: TRAZODONE HYDROCHLORIDE
  40. CARISOPRODOL. [Concomitant]
     Active Substance: CARISOPRODOL
  41. ESTRADIOL. [Concomitant]
     Active Substance: ESTRADIOL
  42. CHLORTHALIDONE. [Concomitant]
     Active Substance: CHLORTHALIDONE
  43. METHYLPREDNISOLONE. [Concomitant]
     Active Substance: METHYLPREDNISOLONE
  44. CYCLOBENZAPRINE. [Concomitant]
     Active Substance: CYCLOBENZAPRINE
  45. PERCOCET [Concomitant]
     Active Substance: ACETAMINOPHEN\OXYCODONE HYDROCHLORIDE
  46. PREVACID [Suspect]
     Active Substance: LANSOPRAZOLE
     Indication: GASTROOESOPHAGEAL REFLUX DISEASE
     Route: 065
  47. TRAMADOL. [Concomitant]
     Active Substance: TRAMADOL
     Indication: PAIN
     Dates: start: 2013, end: 2018
  48. DOXYCYCLINE. [Concomitant]
     Active Substance: DOXYCYCLINE
     Indication: INFECTION
     Dates: start: 2013, end: 2015
  49. PEPCID [Concomitant]
     Active Substance: FAMOTIDINE
     Dosage: PEPCID AC
  50. TUMS [Concomitant]
     Active Substance: CALCIUM CARBONATE
     Dates: start: 1990
  51. AMBIEN [Concomitant]
     Active Substance: ZOLPIDEM TARTRATE
  52. CLONAZEPAM. [Concomitant]
     Active Substance: CLONAZEPAM
  53. CLINDAMYCIN. [Concomitant]
     Active Substance: CLINDAMYCIN
  54. TOPIRAMATE. [Concomitant]
     Active Substance: TOPIRAMATE
  55. SERTRALINE [Concomitant]
     Active Substance: SERTRALINE HYDROCHLORIDE

REACTIONS (3)
  - Chronic kidney disease [Not Recovered/Not Resolved]
  - Rebound acid hypersecretion [Unknown]
  - Renal failure [Unknown]

NARRATIVE: CASE EVENT DATE: 20171110
